FAERS Safety Report 5343182-X (Version None)
Quarter: 2007Q2

REPORT INFORMATION
  Report Type: 
  Country: None (occurrence: None)
  Receive Date: 20070416
  Receipt Date: 20070312
  Transmission Date: 20071010
  Serious: No
  Sender: FDA-Public Use
  Company Number: 2007SP000882

PATIENT
  Age: 75 Year
  Sex: Female
  Weight: 77.1115 kg

DRUGS (21)
  1. LUNESTA [Suspect]
     Indication: INSOMNIA
     Dosage: SEE IMAGE
     Route: 048
     Dates: start: 20060101, end: 20060101
  2. LUNESTA [Suspect]
     Indication: INSOMNIA
     Dosage: SEE IMAGE
     Route: 048
     Dates: start: 20060101
  3. LEVOTHYROXINE SODIUM [Concomitant]
  4. BENICAR [Concomitant]
  5. SIMVASTATIN [Concomitant]
  6. DILTIAZEM [Concomitant]
  7. ASPIRIN [Concomitant]
  8. IRON [Concomitant]
  9. ESTER-C [Concomitant]
  10. CITRUCEL [Concomitant]
  11. CITRACAL [Concomitant]
  12. VITAMIN E [Concomitant]
  13. VITAMIN B-12 [Concomitant]
  14. VITAMIN CAP [Concomitant]
  15. CALCIUM CHLORIDE [Concomitant]
  16. MAGNESIUM SULFATE [Concomitant]
  17. ZINC [Concomitant]
  18. GINSENG [Concomitant]
  19. GINKGO BILOBA [Concomitant]
  20. INDAPAMIDE [Concomitant]
  21. GLUCOSAMNE W/CHONDROITIN [Concomitant]

REACTIONS (2)
  - DRUG INEFFECTIVE [None]
  - MIDDLE INSOMNIA [None]
